FAERS Safety Report 8298216-X (Version None)
Quarter: 2012Q2

REPORT INFORMATION
  Report Type: 
  Country: None (occurrence: None)
  Receive Date: 20120419
  Receipt Date: 20120229
  Transmission Date: 20120825
  Serious: Yes (Other)
  Sender: FDA-Public Use
  Company Number: US-BRISTOL-MYERS SQUIBB COMPANY-16425779

PATIENT
  Sex: Male

DRUGS (1)
  1. YERVOY [Suspect]
     Indication: METASTATIC NEOPLASM

REACTIONS (4)
  - FLANK PAIN [None]
  - ERYTHEMA [None]
  - PRURITUS [None]
  - RASH [None]
